FAERS Safety Report 17373402 (Version 1)
Quarter: 2020Q1

REPORT INFORMATION
  Report Type: Spontaneous
  Country: SE (occurrence: SE)
  Receive Date: 20200205
  Receipt Date: 20200205
  Transmission Date: 20200409
  Serious: No
  Sender: FDA-Public Use
  Company Number: SE-PHOTOCURE ASA-HX-PM-SE-191200008

PATIENT

DRUGS (1)
  1. CYSVIEW [Suspect]
     Active Substance: HEXAMINOLEVULINATE HYDROCHLORIDE
     Dosage: UNK
     Dates: start: 20191204, end: 20191204

REACTIONS (1)
  - Drug ineffective [Unknown]

NARRATIVE: CASE EVENT DATE: 20191204
